FAERS Safety Report 6144516-9 (Version None)
Quarter: 2009Q2

REPORT INFORMATION
  Report Type: 
  Country: None (occurrence: None)
  Receive Date: 20090406
  Receipt Date: 20090326
  Transmission Date: 20091009
  Serious: Yes (Other)
  Sender: FDA-Public Use
  Company Number: US-ROCHE-578150

PATIENT
  Age: 90 Year
  Sex: Female

DRUGS (5)
  1. BONIVA [Suspect]
     Indication: OSTEOPOROSIS
     Dosage: OTHER INDICATION: OSTEOPENIA
     Route: 065
     Dates: start: 20080101
  2. AMIODARONE HCL [Concomitant]
     Dosage: DRUG REPORTED: AMIDARONE
  3. VICODIN [Concomitant]
  4. CALCIUM [Concomitant]
     Dosage: DRUG REPORTED: CALCIUM/ VICODIN
  5. NEXIUM [Concomitant]

REACTIONS (4)
  - FALL [None]
  - GASTROOESOPHAGEAL REFLUX DISEASE [None]
  - HIP FRACTURE [None]
  - SPINAL COLUMN STENOSIS [None]
